FAERS Safety Report 9982368 (Version 1)
Quarter: 2014Q1

REPORT INFORMATION
  Report Type: Spontaneous
  Country: US (occurrence: None)
  Receive Date: 20140306
  Receipt Date: 20140306
  Transmission Date: 20141002
  Serious: No
  Sender: FDA-Public Use
  Company Number: None

PATIENT
  Age: 80 Year
  Sex: Female
  Weight: 81 kg

DRUGS (2)
  1. CARBOPLATIN [Suspect]
  2. PACLITAXEL (TAXOL) [Suspect]

REACTIONS (4)
  - Vertigo [None]
  - Ear discomfort [None]
  - Haemoglobin decreased [None]
  - Neutrophil count decreased [None]
